FAERS Safety Report 6160547-7 (Version None)
Quarter: 2009Q2

REPORT INFORMATION
  Report Type: 
  Country: None (occurrence: None)
  Receive Date: 20090415
  Receipt Date: 20090415
  Transmission Date: 20091009
  Serious: Yes (Other)
  Sender: FDA-Public Use
  Company Number: None

PATIENT
  Age: 73 Year
  Sex: Female
  Weight: 71.6683 kg

DRUGS (1)
  1. ALENDRONATE SODIUM [Suspect]
     Indication: OSTEOPOROSIS
     Dosage: 70 MG 1 PER WEEK PO
     Route: 048
     Dates: start: 20090124, end: 20090124

REACTIONS (3)
  - BACK PAIN [None]
  - DYSPEPSIA [None]
  - OESOPHAGEAL DISORDER [None]
